FAERS Safety Report 4977738-0 (Version None)
Quarter: 2006Q1

REPORT INFORMATION
  Report Type: 
  Country: None (occurrence: None)
  Receive Date: 20060215
  Receipt Date: 20051114
  Transmission Date: 20060701
  Serious: Yes (Other)
  Sender: FDA-Public Use
  Company Number: MC200501040

PATIENT
  Age: 73 Year
  Sex: Male

DRUGS (2)
  1. ANGIOMAX [Suspect]
     Indication: ARTERIOGRAM CORONARY
     Dosage: 0.75 MG/KG, BOLUS, IV BOLUS
     Route: 040
     Dates: start: 20051114
  2. ANGIOMAX [Suspect]
     Indication: ARTERIOGRAM CORONARY
     Dosage: 0.25 MG/KG, HR, INTRAVENOUS
     Route: 042
     Dates: start: 20051114

REACTIONS (1)
  - RECTAL HAEMORRHAGE [None]
